FAERS Safety Report 6971375-4 (Version None)
Quarter: 2010Q3

REPORT INFORMATION
  Report Type: 
  Country: None (occurrence: None)
  Receive Date: 20100908
  Receipt Date: 20100831
  Transmission Date: 20110219
  Serious: Yes (Hospitalization, Other)
  Sender: FDA-Public Use
  Company Number: JP-JNJFOC-20100800684

PATIENT
  Sex: Female

DRUGS (2)
  1. LEVOFLOXACIN [Suspect]
     Indication: URINARY TRACT INFECTION
     Route: 048
  2. BIO THREE [Concomitant]
     Route: 065

REACTIONS (2)
  - ANAPHYLACTIC SHOCK [None]
  - DYSPNOEA [None]
